FAERS Safety Report 6695452-0 (Version None)
Quarter: 2010Q2

REPORT INFORMATION
  Report Type: 
  Country: None (occurrence: None)
  Receive Date: 20100422
  Receipt Date: 20100422
  Transmission Date: 20101027
  Serious: No
  Sender: FDA-Public Use
  Company Number: None

PATIENT
  Sex: Male
  Weight: 94.8018 kg

DRUGS (3)
  1. SIMVASTATIN [Suspect]
     Indication: DYSLIPIDAEMIA
  2. PRAVASTATIN [Suspect]
     Indication: DYSLIPIDAEMIA
  3. LOVASTATIN [Suspect]

REACTIONS (1)
  - MYALGIA [None]
